FAERS Safety Report 6933266-4 (Version None)
Quarter: 2010Q3

REPORT INFORMATION
  Report Type: 
  Country: None (occurrence: None)
  Receive Date: 20100820
  Receipt Date: 20100810
  Transmission Date: 20110219
  Serious: Yes (Other)
  Sender: FDA-Public Use
  Company Number: US-JNJFOC-20100804143

PATIENT
  Sex: Female

DRUGS (12)
  1. LEVAQUIN [Suspect]
     Indication: PRODUCT USED FOR UNKNOWN INDICATION
     Route: 065
  2. CEFTIN [Suspect]
     Indication: PRODUCT USED FOR UNKNOWN INDICATION
     Route: 065
  3. CIPRO [Suspect]
     Indication: PRODUCT USED FOR UNKNOWN INDICATION
     Route: 065
  4. PENICILLIN [Suspect]
     Indication: PRODUCT USED FOR UNKNOWN INDICATION
     Route: 065
  5. MYCINS NOS [Suspect]
     Indication: PRODUCT USED FOR UNKNOWN INDICATION
     Route: 065
  6. CHEMOTHERAPEUTICS NOS [Suspect]
     Indication: PRODUCT USED FOR UNKNOWN INDICATION
     Route: 065
  7. CARAFATE [Concomitant]
     Indication: GASTRIC DISORDER
     Route: 065
  8. ALL OTHER THERAPEUTICS [Concomitant]
     Route: 065
  9. NASAL INHALER, NOS [Concomitant]
     Route: 065
  10. SINGULAIR [Concomitant]
     Route: 065
  11. CHOLESTEROL PILLS [Concomitant]
     Route: 065
  12. VALIUM [Concomitant]
     Route: 065

REACTIONS (4)
  - BONE DENSITY DECREASED [None]
  - GALLBLADDER DISORDER [None]
  - GASTRITIS [None]
  - HYPERSENSITIVITY [None]
